FAERS Safety Report 5135254-X (Version None)
Quarter: 2006Q4

REPORT INFORMATION
  Report Type: 
  Country: None (occurrence: None)
  Receive Date: 20061026
  Receipt Date: 20061013
  Transmission Date: 20070319
  Serious: Yes (Other)
  Sender: FDA-Public Use
  Company Number: GBWYE228013OCT06

PATIENT
  Age: 50 Year
  Sex: Male
  Weight: 67 kg

DRUGS (3)
  1. ENBREL [Suspect]
     Indication: ARTHRITIS
     Route: 058
     Dates: start: 20051001, end: 20060401
  2. SOLPADOL [Concomitant]
     Indication: ARTHRALGIA
     Dosage: 2 DOSE EVERY
     Route: 048
     Dates: start: 20001201
  3. NAPROXEN [Concomitant]
     Indication: ARTHRITIS
     Dosage: 500MG, FREQUENCY UNKNOWN
     Route: 048
     Dates: start: 19991201

REACTIONS (1)
  - SEPTIC ARTHRITIS STAPHYLOCOCCAL [None]
